FAERS Safety Report 23582346 (Version 1)
Quarter: 2024Q1

REPORT INFORMATION
  Report Type: Spontaneous
  Country: US (occurrence: US)
  Receive Date: 20240229
  Receipt Date: 20240229
  Transmission Date: 20240410
  Serious: No
  Sender: FDA-Public Use
  Company Number: US-SANOFI-01957402

PATIENT
  Age: 53 Year
  Sex: Male

DRUGS (14)
  1. DUPIXENT [Suspect]
     Active Substance: DUPILUMAB
     Indication: Neurodermatitis
     Dosage: 600MG, 1X
     Dates: start: 20240221, end: 20240221
  2. CARBAMAZEPINE [Concomitant]
     Active Substance: CARBAMAZEPINE
  3. RYBELSUS [Concomitant]
     Active Substance: SEMAGLUTIDE
  4. NORTRIPTYLINE [Concomitant]
     Active Substance: NORTRIPTYLINE
  5. JARDIANCE [Concomitant]
     Active Substance: EMPAGLIFLOZIN
  6. SPIRONOLACTONE [Concomitant]
     Active Substance: SPIRONOLACTONE
  7. DULOXETINE [Concomitant]
     Active Substance: DULOXETINE
  8. LOSARTAN [Concomitant]
     Active Substance: LOSARTAN
  9. LOSARTAN POTASSIUM [Concomitant]
     Active Substance: LOSARTAN POTASSIUM
  10. ASPIRIN [Concomitant]
     Active Substance: ASPIRIN
  11. CARVEDILOL [Concomitant]
     Active Substance: CARVEDILOL
  12. ATORVASTATIN [Concomitant]
     Active Substance: ATORVASTATIN
  13. AMLODIPINE BESYLATE [Concomitant]
     Active Substance: AMLODIPINE BESYLATE
  14. SULFAMETHOXAZOLE [Concomitant]
     Active Substance: SULFAMETHOXAZOLE
     Indication: Staphylococcal infection

REACTIONS (1)
  - Injection site vesicles [Unknown]

NARRATIVE: CASE EVENT DATE: 20240221
